FAERS Safety Report 17445782 (Version 3)
Quarter: 2020Q1

REPORT INFORMATION
  Report Type: Spontaneous
  Country: FR (occurrence: FR)
  Receive Date: 20200221
  Receipt Date: 20200225
  Transmission Date: 20200409
  Serious: Yes (Death, Other)
  Sender: FDA-Public Use
  Company Number: FR-PFIZER INC-2020068150

PATIENT
  Age: 64 Year
  Sex: Female

DRUGS (9)
  1. FOLINIC ACID [Concomitant]
     Active Substance: LEUCOVORIN
     Indication: COLORECTAL CANCER METASTATIC
     Dosage: UNK, CYCLIC
     Dates: start: 2001
  2. FLUOROURACIL. [Concomitant]
     Active Substance: FLUOROURACIL
     Dosage: UNK, CYCLIC
     Dates: start: 2001
  3. IRINOTECAN [Concomitant]
     Active Substance: IRINOTECAN
     Indication: METASTASES TO LIVER
     Dosage: UNK, CYCLIC
     Dates: start: 2001
  4. FLUOROURACIL. [Concomitant]
     Active Substance: FLUOROURACIL
     Indication: COLORECTAL CANCER METASTATIC
     Dosage: 2400 MG/M2, CYCLIC (8 CYCLES, EVERY 15 DAYS, CONTINUOUS)
     Dates: start: 200104, end: 200108
  5. OXALIPLATIN. [Suspect]
     Active Substance: OXALIPLATIN
     Indication: COLORECTAL CANCER METASTATIC
     Dosage: 85 MG/M2, CYCLIC (8 CYCLES, EVERY 15 DAYS)
     Dates: start: 200104, end: 200108
  6. OXALIPLATIN. [Suspect]
     Active Substance: OXALIPLATIN
     Dosage: UNK, CYCLIC
     Dates: start: 200209
  7. IRINOTECAN [Concomitant]
     Active Substance: IRINOTECAN
     Indication: COLORECTAL CANCER METASTATIC
  8. FOLINIC ACID [Concomitant]
     Active Substance: LEUCOVORIN
     Indication: METASTASES TO LIVER
     Dosage: 200 MG/M2, CYCLIC (8 CYCLES, EVERY 15 DAYS)
     Dates: start: 200104, end: 200108
  9. FLUOROURACIL. [Concomitant]
     Active Substance: FLUOROURACIL
     Indication: METASTASES TO LIVER
     Dosage: 400 MG/M2, CYCLIC (8 CYCLES, EVERY 15 DAYS)
     Route: 040
     Dates: start: 200104, end: 200108

REACTIONS (3)
  - Neurotoxicity [Unknown]
  - Dysaesthesia pharynx [Unknown]
  - Paraesthesia [Unknown]

NARRATIVE: CASE EVENT DATE: 2001
